FAERS Safety Report 7230270-6 (Version None)
Quarter: 2011Q1

REPORT INFORMATION
  Report Type: 
  Country: None (occurrence: None)
  Receive Date: 20110118
  Receipt Date: 20110112
  Transmission Date: 20110831
  Serious: No
  Sender: FDA-Public Use
  Company Number: US-PFIZER INC-2011008014

PATIENT
  Sex: Male
  Weight: 85.261 kg

DRUGS (2)
  1. VIAGRA [Suspect]
     Indication: ERECTILE DYSFUNCTION
     Dosage: UNK
     Route: 048
     Dates: start: 20010101
  2. ETHANOL [Interacting]

REACTIONS (3)
  - EXPIRED DRUG ADMINISTERED [None]
  - ALCOHOL INTERACTION [None]
  - DRUG INEFFECTIVE [None]
